FAERS Safety Report 5181761-3 (Version None)
Quarter: 2006Q4

REPORT INFORMATION
  Report Type: 
  Country: None (occurrence: None)
  Receive Date: 20061220
  Receipt Date: 20060308
  Transmission Date: 20070319
  Serious: No
  Sender: FDA-Public Use
  Company Number: US-GLAXOSMITHKLINE-A0596695A

PATIENT
  Age: 59 Year
  Sex: Female

DRUGS (2)
  1. COMMIT [Suspect]
     Indication: DRUG WITHDRAWAL MAINTENANCE THERAPY
  2. ANTIDEPRESSANT [Concomitant]

REACTIONS (3)
  - INTENTIONAL DRUG MISUSE [None]
  - ORAL PAIN [None]
  - STOMATITIS [None]
